FAERS Safety Report 13107739 (Version 1)
Quarter: 2017Q1

REPORT INFORMATION
  Report Type: Report from Study
  Country: CO (occurrence: CO)
  Receive Date: 20170112
  Receipt Date: 20170112
  Transmission Date: 20170428
  Serious: Yes (Hospitalization, Other)
  Sender: FDA-Public Use
  Company Number: CO-AMGEN-COLSL2017002048

PATIENT
  Age: 57 Year
  Sex: Female

DRUGS (2)
  1. ENBREL [Suspect]
     Active Substance: ETANERCEPT
     Indication: ARTHRITIS
     Dosage: UNK
     Route: 065
  2. PROLIA [Suspect]
     Active Substance: DENOSUMAB
     Indication: OSTEOPOROSIS
     Dosage: 60 MG, SEMIANNUALLY
     Route: 058

REACTIONS (5)
  - Arthralgia [Unknown]
  - Urinary retention [Unknown]
  - Diarrhoea [Unknown]
  - Vomiting [Unknown]
  - Hepatic pain [Unknown]

NARRATIVE: CASE EVENT DATE: 201612
